FAERS Safety Report 8871519 (Version 1)
Quarter: 2012Q4

REPORT INFORMATION
  Report Type: Spontaneous
  Country: US (occurrence: None)
  Receive Date: 20121026
  Receipt Date: 20121026
  Transmission Date: 20130627
  Serious: Yes (Life-Threatening, Hospitalization)
  Sender: FDA-Public Use
  Company Number: None

PATIENT
  Age: 69 Year
  Sex: Female
  Weight: 91.8 kg

DRUGS (3)
  1. ALTEPLASE [Suspect]
     Route: 040
     Dates: start: 20121019, end: 20121019
  2. ALTEPLASE [Suspect]
     Route: 041
     Dates: start: 20121019, end: 20121019
  3. ACTIVASE [Concomitant]

REACTIONS (2)
  - Neck pain [None]
  - Swollen tongue [None]
